FAERS Safety Report 7745699-7 (Version None)
Quarter: 2011Q3

REPORT INFORMATION
  Report Type: 
  Country: None (occurrence: None)
  Receive Date: 20110913
  Receipt Date: 20110907
  Transmission Date: 20111222
  Serious: Yes (Hospitalization)
  Sender: FDA-Public Use
  Company Number: US-BAYER-2011-061837

PATIENT
  Age: 60 Year
  Sex: Male

DRUGS (2)
  1. SORAFENIB (RAF KINASE INHIBITOR) [Suspect]
     Indication: HEPATIC NEOPLASM MALIGNANT
     Dosage: 400 MG, BID
     Dates: start: 20110709, end: 20110718
  2. SORAFENIB (RAF KINASE INHIBITOR) [Suspect]
     Dosage: 200 MG, BID
     Dates: start: 20110810

REACTIONS (10)
  - MUSCLE SPASMS [None]
  - RASH [None]
  - BLOOD COUNT ABNORMAL [None]
  - DIZZINESS [None]
  - DIARRHOEA [None]
  - FATIGUE [None]
  - CONSTIPATION [None]
  - ABDOMINAL PAIN [None]
  - ORAL DISCOMFORT [None]
  - HAEMATOCHEZIA [None]
